FAERS Safety Report 7416933-8 (Version None)
Quarter: 2011Q2

REPORT INFORMATION
  Report Type: 
  Country: None (occurrence: None)
  Receive Date: 20110407
  Receipt Date: 20110324
  Transmission Date: 20111010
  Serious: Yes (Hospitalization)
  Sender: FDA-Public Use
  Company Number: TPA2011A01232

PATIENT
  Age: 76 Year
  Sex: Female

DRUGS (14)
  1. LOPRESSOR [Concomitant]
  2. DILAUDID [Concomitant]
  3. PANTOPRAZOLE SODIUM [Concomitant]
  4. HYDROMORPH CONTIN (HYDROMORPHONE HYDROCHLORIDE) [Concomitant]
  5. COLACE (DOCUSATE SODIUM) [Concomitant]
  6. ULORIC [Suspect]
     Indication: GOUT
     Dosage: 80 MG, PER ORAL
     Route: 048
     Dates: start: 20101103, end: 20110209
  7. COLCHICINE [Concomitant]
  8. ALDACTONE [Concomitant]
  9. LASIX [Concomitant]
  10. PLAQUENIL [Concomitant]
  11. SYNTHROID [Concomitant]
  12. LYRICA [Concomitant]
  13. COUMADIN [Concomitant]
  14. ENALAPRIL [Concomitant]

REACTIONS (2)
  - SKIN NECROSIS [None]
  - RASH [None]
